FAERS Safety Report 8247117-1 (Version None)
Quarter: 2012Q1

REPORT INFORMATION
  Report Type: 
  Country: None (occurrence: None)
  Receive Date: 20120330
  Receipt Date: 20120321
  Transmission Date: 20120608
  Serious: No
  Sender: FDA-Public Use
  Company Number: US-JNJFOC-20110810511

PATIENT
  Sex: Female
  Weight: 75 kg

DRUGS (15)
  1. RELAFEN [Concomitant]
     Route: 048
     Dates: start: 20100317
  2. ALPRAZOLAM [Concomitant]
     Route: 048
     Dates: start: 20071206
  3. XANAX [Concomitant]
     Route: 048
     Dates: start: 20090311
  4. METHOTREXATE [Concomitant]
     Indication: RHEUMATOID ARTHRITIS
     Route: 048
     Dates: start: 20080603
  5. VOLTAREN [Concomitant]
     Route: 061
     Dates: start: 20091014
  6. MS CONTIN [Concomitant]
     Route: 048
     Dates: start: 20100324
  7. ALLEGRA-D 12 HOUR [Concomitant]
     Route: 048
     Dates: start: 20090720
  8. VICODIN [Concomitant]
     Route: 048
     Dates: start: 20060809
  9. GOLIMUMAB [Suspect]
     Indication: RHEUMATOID ARTHRITIS
     Route: 058
     Dates: start: 20060628
  10. ICAPS [Concomitant]
     Dates: start: 20040101
  11. ESTRACE [Concomitant]
     Route: 067
     Dates: start: 20110301
  12. FOSAMAX [Concomitant]
     Route: 048
     Dates: start: 20090429
  13. FOLIC ACID [Concomitant]
     Route: 048
     Dates: start: 20110506
  14. GOLIMUMAB [Suspect]
     Route: 058
  15. SODIUM CHLORIDE [Concomitant]
     Route: 047
     Dates: start: 20000101

REACTIONS (1)
  - BASAL CELL CARCINOMA [None]
